FAERS Safety Report 8143409-5 (Version None)
Quarter: 2012Q1

REPORT INFORMATION
  Report Type: 
  Country: None (occurrence: None)
  Receive Date: 20120217
  Receipt Date: 20120215
  Transmission Date: 20120608
  Serious: Yes (Other)
  Sender: FDA-Public Use
  Company Number: US-AMGEN-USASP2012010065

PATIENT
  Age: 67 Year
  Sex: Female

DRUGS (3)
  1. PROLIA [Suspect]
     Indication: OSTEOPOROSIS POSTMENOPAUSAL
     Dates: start: 20120206
  2. VITAMIN D [Concomitant]
     Indication: OSTEOPOROSIS POSTMENOPAUSAL
     Dosage: UNK
  3. CALCIUM [Concomitant]
     Indication: OSTEOPOROSIS POSTMENOPAUSAL
     Dosage: UNK

REACTIONS (7)
  - PAIN IN JAW [None]
  - ABDOMINAL PAIN UPPER [None]
  - BONE PAIN [None]
  - INFLUENZA [None]
  - SENSATION OF HEAVINESS [None]
  - ASTHENIA [None]
  - INSOMNIA [None]
